FAERS Safety Report 7426757-3 (Version None)
Quarter: 2011Q2

REPORT INFORMATION
  Report Type: 
  Country: None (occurrence: None)
  Receive Date: 20110420
  Receipt Date: 20110412
  Transmission Date: 20111010
  Serious: Yes (Other)
  Sender: FDA-Public Use
  Company Number: PHHY2011GB30116

PATIENT
  Age: 33 Year
  Sex: Female
  Weight: 62.4 kg

DRUGS (9)
  1. TOBRAMYCIN [Concomitant]
  2. MEROPENEM [Suspect]
     Indication: CYSTIC FIBROSIS LUNG
     Dosage: 2 G, UNK
     Route: 042
     Dates: start: 20110401, end: 20110401
  3. CREON [Concomitant]
  4. ALBUTEROL SULFATE AUTOHALER [Concomitant]
  5. SALMETEROL [Concomitant]
  6. VITAMIN E [Concomitant]
  7. AZITHROMYCIN [Concomitant]
  8. NORMAL SALINE [Concomitant]
  9. VITAMIN A+D [Concomitant]

REACTIONS (1)
  - VERTIGO [None]
